FAERS Safety Report 9075055 (Version 1)
Quarter: 2013Q1

REPORT INFORMATION
  Report Type: Report from Study
  Country: US (occurrence: US)
  Receive Date: 20130129
  Receipt Date: 20130129
  Transmission Date: 20140127
  Serious: No
  Sender: FDA-Public Use
  Company Number: US-ABBOTT-12P-163-0925906-00

PATIENT
  Age: 50 Year
  Sex: Male

DRUGS (9)
  1. HUMIRA 40 MG/0.8 ML PEN [Suspect]
     Indication: CROHN^S DISEASE
     Dates: end: 201104
  2. HUMIRA 40 MG/0.8 ML PEN [Suspect]
  3. HUMIRA 40 MG/0.8 ML PEN [Suspect]
  4. HUMIRA 40 MG/0.8 ML PEN [Suspect]
  5. CIMZIA [Suspect]
     Indication: CROHN^S DISEASE
  6. CORTISONE INJECTIONS [Concomitant]
     Indication: SPINAL FRACTURE
  7. OXYCONTIN [Concomitant]
     Indication: PAIN
  8. XANAX [Concomitant]
     Indication: ANXIETY
  9. ASACOL [Concomitant]
     Indication: CONDITION AGGRAVATED
     Dosage: 3 PILLS OR 6 PILLS DAILY

REACTIONS (6)
  - Wrong technique in drug usage process [Unknown]
  - Incorrect route of drug administration [Unknown]
  - Drug dose omission [Unknown]
  - Abdominal pain upper [Unknown]
  - Psoriasis [Not Recovered/Not Resolved]
  - Drug ineffective [Not Recovered/Not Resolved]
